FAERS Safety Report 15660912 (Version 1)
Quarter: 2018Q4

REPORT INFORMATION
  Report Type: Spontaneous
  Country: US (occurrence: US)
  Receive Date: 20181127
  Receipt Date: 20181127
  Transmission Date: 20190205
  Serious: No
  Sender: FDA-Public Use
  Company Number: US-TEVA-2018-US-930478

PATIENT
  Age: 49 Year
  Sex: Male

DRUGS (3)
  1. INDOMETACIN [Suspect]
     Active Substance: INDOMETHACIN
     Indication: MIGRAINE
     Route: 065
  2. INDOMETACIN [Suspect]
     Active Substance: INDOMETHACIN
     Indication: CHRONIC PAROXYSMAL HEMICRANIA
  3. INDOMETACIN [Suspect]
     Active Substance: INDOMETHACIN
     Indication: POST-TRAUMATIC HEADACHE
     Dosage: 3 TIMES PER DAY
     Route: 065

REACTIONS (1)
  - Abdominal discomfort [Recovering/Resolving]
